FAERS Safety Report 11380053 (Version 2)
Quarter: 2015Q3

REPORT INFORMATION
  Report Type: Report from Study
  Country: BR (occurrence: BR)
  Receive Date: 20150814
  Receipt Date: 20150916
  Transmission Date: 20151125
  Serious: Yes (Other)
  Sender: FDA-Public Use
  Company Number: PHHY2015BR097345

PATIENT
  Age: 74 Year
  Sex: Male
  Weight: 53 kg

DRUGS (11)
  1. ONBREZ [Suspect]
     Active Substance: INDACATEROL
     Indication: EMPHYSEMA
     Dosage: 1 DF, QD (320/10 UNITS NOT PROVIDED)
     Route: 055
     Dates: start: 2011
  2. DIOVAN [Suspect]
     Active Substance: VALSARTAN
     Dosage: 2 DF, QD (160 MG)
     Route: 048
     Dates: start: 2011
  3. SPIRIVA [Concomitant]
     Active Substance: TIOTROPIUM BROMIDE MONOHYDRATE
     Indication: CHRONIC OBSTRUCTIVE PULMONARY DISEASE
     Dosage: 2 DF, QD
     Route: 055
  4. APRESOLIN [Concomitant]
     Active Substance: HYDRALAZINE HYDROCHLORIDE
     Indication: HYPERTENSION
     Dosage: 3 DF, QD
     Route: 048
  5. AMLODIPINE [Concomitant]
     Active Substance: AMLODIPINE BESYLATE
     Indication: HYPERTENSION
     Dosage: 2 DF, QD
     Route: 048
  6. FLUIMUCIL [Concomitant]
     Active Substance: ACETYLCYSTEINE
     Indication: SECRETION DISCHARGE
     Dosage: 1 DF, QD
     Route: 048
  7. ONBREZ [Suspect]
     Active Substance: INDACATEROL
     Indication: HYPERTENSION
  8. FOLIC ACID. [Concomitant]
     Active Substance: FOLIC ACID
     Indication: ASTHENIA
     Dosage: 1 DF, QD
     Route: 048
  9. DIOVAN [Suspect]
     Active Substance: VALSARTAN
     Indication: HYPERTENSION
     Dosage: 1 DF, QD (320/10 MG)
     Route: 048
     Dates: start: 2010, end: 2011
  10. OXIMAR [Concomitant]
     Indication: CHRONIC OBSTRUCTIVE PULMONARY DISEASE
     Dosage: 2 DF, QD
     Route: 055
  11. VITAMIN B COMPLEX [Concomitant]
     Active Substance: CYANOCOBALAMIN\DEXPANTHENOL\NIACINAMIDE\PYRIDOXINE HYDROCHLORIDE\RIBOFLAVIN 5^-PHOSPHATE SODIUM\THIAMINE HYDROCHLORIDE\VITAMIN B COMPLEX
     Indication: ASTHENIA
     Dosage: 1 DF, QD
     Route: 065

REACTIONS (14)
  - Limb injury [Recovering/Resolving]
  - Immunodeficiency [Recovering/Resolving]
  - Emphysema [Recovering/Resolving]
  - Fall [Recovering/Resolving]
  - Bone density decreased [Not Recovered/Not Resolved]
  - Fatigue [Recovering/Resolving]
  - Gastritis [Recovering/Resolving]
  - Wound [Not Recovered/Not Resolved]
  - Ligament rupture [Not Recovered/Not Resolved]
  - Carotid arterial embolus [Unknown]
  - Nausea [Recovering/Resolving]
  - Pneumonia [Recovering/Resolving]
  - Bronchitis [Recovering/Resolving]
  - Reflux gastritis [Recovering/Resolving]

NARRATIVE: CASE EVENT DATE: 2011
